FAERS Safety Report 4906259-6 (Version None)
Quarter: 2006Q1

REPORT INFORMATION
  Report Type: 
  Country: None (occurrence: None)
  Receive Date: 20060207
  Receipt Date: 20060124
  Transmission Date: 20060701
  Serious: Yes (Death)
  Sender: FDA-Public Use
  Company Number: 2006000190

PATIENT

DRUGS (1)
  1. ERLOTINIB HCL (TABLET) [Suspect]
     Indication: NON-SMALL CELL LUNG CANCER
     Dosage: 150 MG  (QD), ORAL
     Route: 048
     Dates: start: 20051121, end: 20060115

REACTIONS (3)
  - DISEASE PROGRESSION [None]
  - EMBOLISM [None]
  - NON-SMALL CELL LUNG CANCER [None]
